FAERS Safety Report 6037910-8 (Version None)
Quarter: 2009Q1

REPORT INFORMATION
  Report Type: 
  Country: None (occurrence: None)
  Receive Date: 20090113
  Receipt Date: 20090113
  Transmission Date: 20090719
  Serious: Yes (Hospitalization)
  Sender: FDA-Public Use
  Company Number: None

PATIENT
  Age: 68 Year
  Sex: Male

DRUGS (1)
  1. WARFARIN SODIUM [Suspect]
     Indication: DEEP VEIN THROMBOSIS
     Dosage: 6 MG EVERY DAY PO
     Route: 048
     Dates: start: 20080711, end: 20081222

REACTIONS (1)
  - DIVERTICULUM INTESTINAL HAEMORRHAGIC [None]
